FAERS Safety Report 22040760 (Version 1)
Quarter: 2023Q1

REPORT INFORMATION
  Report Type: Spontaneous
  Country: NL (occurrence: NL)
  Receive Date: 20230227
  Receipt Date: 20230227
  Transmission Date: 20230417
  Serious: Yes (Other)
  Sender: FDA-Public Use
  Company Number: None

PATIENT
  Sex: Male
  Weight: 76.6 kg

DRUGS (1)
  1. MIRTAZAPINE [Suspect]
     Active Substance: MIRTAZAPINE
     Indication: Anxiety disorder
     Dosage: 1 TIME PER DAY
     Dates: start: 20150601, end: 20220215

REACTIONS (1)
  - Diabetes mellitus inadequate control [Recovered/Resolved]
